FAERS Safety Report 16932002 (Version 2)
Quarter: 2019Q4

REPORT INFORMATION
  Report Type: Spontaneous
  Country: US (occurrence: US)
  Receive Date: 20191017
  Receipt Date: 20191125
  Transmission Date: 20200122
  Serious: Yes (Hospitalization, Other)
  Sender: FDA-Public Use
  Company Number: US-009507513-1910USA007696

PATIENT
  Age: 67 Year
  Sex: Female
  Weight: 78.47 kg

DRUGS (2)
  1. VERAPAMIL ER [Suspect]
     Active Substance: VERAPAMIL HYDROCHLORIDE
     Indication: BLOOD PRESSURE ABNORMAL
     Dosage: 180 MG TABLET BY MOUTH, ONCE A DAY
     Route: 048
     Dates: start: 20190926, end: 20190930
  2. COZAAR [Suspect]
     Active Substance: LOSARTAN POTASSIUM
     Indication: BLOOD PRESSURE ABNORMAL
     Dosage: UNK
     Route: 048
     Dates: start: 2019, end: 2019

REACTIONS (4)
  - Blood sodium decreased [Recovered/Resolved]
  - Malaise [Recovering/Resolving]
  - Ileus [Recovering/Resolving]
  - Asthenia [Recovering/Resolving]

NARRATIVE: CASE EVENT DATE: 20190930
